FAERS Safety Report 8026829-9 (Version None)
Quarter: 2012Q1

REPORT INFORMATION
  Report Type: 
  Country: None (occurrence: None)
  Receive Date: 20120106
  Receipt Date: 20120103
  Transmission Date: 20120608
  Serious: No
  Sender: FDA-Public Use
  Company Number: US-PFIZER INC-2012002224

PATIENT
  Sex: Female

DRUGS (1)
  1. CHANTIX [Suspect]
     Dosage: UNK

REACTIONS (16)
  - IRRITABILITY [None]
  - PAIN [None]
  - ABDOMINAL DISTENSION [None]
  - ABDOMINAL PAIN UPPER [None]
  - CONFUSIONAL STATE [None]
  - VOMITING [None]
  - CHILLS [None]
  - DYSGEUSIA [None]
  - INCREASED APPETITE [None]
  - ABNORMAL DREAMS [None]
  - SOMNOLENCE [None]
  - TINNITUS [None]
  - NAUSEA [None]
  - FLATULENCE [None]
  - INSOMNIA [None]
  - HALLUCINATION, AUDITORY [None]
